FAERS Safety Report 15687753 (Version 1)
Quarter: 2018Q4

REPORT INFORMATION
  Report Type: Spontaneous
  Country: US (occurrence: US)
  Receive Date: 20181205
  Receipt Date: 20181205
  Transmission Date: 20190205
  Serious: Yes (Other)
  Sender: FDA-Public Use
  Company Number: US-ROCHE-2088508

PATIENT

DRUGS (1)
  1. ACTIVASE [Suspect]
     Active Substance: ALTEPLASE
     Indication: ISCHAEMIC STROKE
     Dosage: NO
     Route: 065
     Dates: start: 20180224

REACTIONS (3)
  - Product complaint [Unknown]
  - Puncture site discharge [Unknown]
  - Inappropriate schedule of product administration [Unknown]
